FAERS Safety Report 9815361 (Version 1)
Quarter: 2014Q1

REPORT INFORMATION
  Report Type: Spontaneous
  Country: US (occurrence: US)
  Receive Date: 20140114
  Receipt Date: 20140114
  Transmission Date: 20141002
  Serious: Yes (Hospitalization)
  Sender: FDA-Public Use
  Company Number: US-TEVA-455022USA

PATIENT
  Age: 50 Year
  Sex: Female

DRUGS (1)
  1. COPAXONE [Suspect]

REACTIONS (2)
  - Staphylococcal infection [Recovered/Resolved]
  - Pyrexia [Recovered/Resolved]
